FAERS Safety Report 6020233-0 (Version None)
Quarter: 2008Q4

REPORT INFORMATION
  Report Type: 
  Country: None (occurrence: None)
  Receive Date: 20081226
  Receipt Date: 20081212
  Transmission Date: 20090506
  Serious: Yes (Other)
  Sender: FDA-Public Use
  Company Number: PHHY2008FR32690

PATIENT
  Age: 69 Year
  Sex: Female

DRUGS (2)
  1. GLEEVEC [Suspect]
     Indication: CHRONIC MYELOID LEUKAEMIA
     Dosage: UNK
  2. NOROXIN [Interacting]
     Indication: URINARY TRACT INFECTION

REACTIONS (5)
  - APHTHOUS STOMATITIS [None]
  - DRUG INTERACTION [None]
  - DRY SKIN [None]
  - LIP HAEMORRHAGE [None]
  - URINARY TRACT INFECTION [None]
